FAERS Safety Report 10250680 (Version 1)
Quarter: 2014Q2

REPORT INFORMATION
  Report Type: Other
  Country: AU (occurrence: AU)
  Receive Date: 20140620
  Receipt Date: 20140620
  Transmission Date: 20141212
  Serious: Yes (Hospitalization, Other)
  Sender: FDA-Public Use
  Company Number: AU-BRISTOL-MYERS SQUIBB COMPANY-21058144

PATIENT
  Age: 67 Year
  Sex: Male

DRUGS (11)
  1. METFORMIN HCL [Suspect]
     Indication: TYPE 2 DIABETES MELLITUS
     Dosage: TOTAL DOSE: 2000MG
  2. INDAPAMIDE [Suspect]
     Indication: HYPERTENSION
  3. GLICLAZIDE [Concomitant]
     Dosage: TOTAL DOSE: 320MG
  4. ISOPHANE INSULIN [Concomitant]
     Dosage: 1DF: 30 UNITS AT NIGHT TIME
  5. PERINDOPRIL [Concomitant]
  6. PANTOPRAZOLE [Concomitant]
  7. ALLOPURINOL [Concomitant]
  8. FELODIPINE [Concomitant]
  9. WARFARIN [Concomitant]
  10. ATORVASTATIN [Concomitant]
  11. FLUOXETINE [Concomitant]

REACTIONS (2)
  - Lactic acidosis [Recovered/Resolved]
  - Renal failure acute [Unknown]
